FAERS Safety Report 18959008 (Version 4)
Quarter: 2022Q4

REPORT INFORMATION
  Report Type: Spontaneous
  Country: JP (occurrence: JP)
  Receive Date: 20210302
  Receipt Date: 20221220
  Transmission Date: 20230112
  Serious: Yes (Other)
  Sender: FDA-Public Use
  Company Number: JP-TEVA-2021-JP-1885377

PATIENT
  Age: 45 Year
  Sex: Male

DRUGS (13)
  1. PREDNISOLONE [Suspect]
     Active Substance: PREDNISOLONE
     Indication: Bone marrow infiltration
     Dosage: AS A PART OF R-CHOP THERAPY
     Route: 065
  2. PREDNISOLONE [Suspect]
     Active Substance: PREDNISOLONE
     Indication: Marginal zone lymphoma
  3. RITUXIMAB [Suspect]
     Active Substance: RITUXIMAB
     Indication: Bone marrow infiltration
     Dosage: 375 MG/M2 DAILY; ONCE A WEEK FOR 4 TIMES AS PART OF MONOTHERAPY
     Route: 065
  4. RITUXIMAB [Suspect]
     Active Substance: RITUXIMAB
     Indication: Marginal zone lymphoma
     Dosage: AS PART OF R-CHOP THERAPY
     Route: 065
  5. RITUXIMAB [Suspect]
     Active Substance: RITUXIMAB
     Dosage: AS PART OF R-CLADRIBINE THERAPY
     Route: 065
  6. DOXORUBICIN [Suspect]
     Active Substance: DOXORUBICIN
     Indication: Bone marrow infiltration
     Dosage: AS A PART OF R-CHOP THERAPY
     Route: 065
  7. DOXORUBICIN [Suspect]
     Active Substance: DOXORUBICIN
     Indication: Marginal zone lymphoma
  8. VINCRISTINE [Suspect]
     Active Substance: VINCRISTINE
     Indication: Bone marrow infiltration
     Route: 065
  9. VINCRISTINE [Suspect]
     Active Substance: VINCRISTINE
     Indication: Marginal zone lymphoma
  10. CLADRIBINE [Suspect]
     Active Substance: CLADRIBINE
     Indication: Marginal zone lymphoma
     Dosage: AS A PART OF R-CLADRIBINE THERAPY
     Route: 065
  11. CLADRIBINE [Suspect]
     Active Substance: CLADRIBINE
     Indication: Bone marrow infiltration
  12. CYCLOPHOSPHAMIDE [Suspect]
     Active Substance: CYCLOPHOSPHAMIDE
     Indication: Bone marrow infiltration
     Dosage: AS A PART OF R-CHOP THERAPY
     Route: 065
  13. CYCLOPHOSPHAMIDE [Suspect]
     Active Substance: CYCLOPHOSPHAMIDE
     Indication: Marginal zone lymphoma

REACTIONS (2)
  - Drug ineffective [Unknown]
  - Drug resistance [Unknown]
